FAERS Safety Report 21514084 (Version 2)
Quarter: 2022Q4

REPORT INFORMATION
  Report Type: Spontaneous
  Country: NL (occurrence: NL)
  Receive Date: 20221027
  Receipt Date: 20221111
  Transmission Date: 20230113
  Serious: Yes (Life-Threatening, Hospitalization, Other)
  Sender: FDA-Public Use
  Company Number: None

PATIENT
  Sex: Male
  Weight: 83 kg

DRUGS (2)
  1. METHOTREXATE [Suspect]
     Active Substance: METHOTREXATE
     Indication: Rheumatoid arthritis
     Dosage: METHOTREXAAT / BRAND NAME NOT SPECIFIED, DURATION : 13 YEARS
     Dates: start: 20060615, end: 20190415
  2. HUMIRA [Suspect]
     Active Substance: ADALIMUMAB
     Indication: Rheumatoid arthritis
     Dosage: 40 MG PER 2 WK, ADALIMUMAB INJVLST 100MG/ML / HUMIRA 40 INJVLST 100MG/ML PEN 0.4ML, DURATION : 12 HR
     Dates: start: 20070715, end: 20190415

REACTIONS (1)
  - Diffuse large B-cell lymphoma [Recovering/Resolving]
